FAERS Safety Report 22092746 (Version 1)
Quarter: 2023Q1

REPORT INFORMATION
  Report Type: Spontaneous
  Country: US (occurrence: None)
  Receive Date: 20230313
  Receipt Date: 20230313
  Transmission Date: 20230417
  Serious: Yes (Hospitalization)
  Sender: FDA-Public Use
  Company Number: None

PATIENT
  Age: 38 Year
  Sex: Female

DRUGS (1)
  1. HUMIRA [Suspect]
     Active Substance: ADALIMUMAB
     Route: 058
     Dates: start: 202011

REACTIONS (6)
  - Crohn^s disease [None]
  - Abdominal pain [None]
  - Drug level abnormal [None]
  - Drug effect less than expected [None]
  - Contusion [None]
  - Nausea [None]

NARRATIVE: CASE EVENT DATE: 20230227
